FAERS Safety Report 10176546 (Version 1)
Quarter: 2014Q2

REPORT INFORMATION
  Report Type: Spontaneous
  Country: CN (occurrence: CN)
  Receive Date: 20140516
  Receipt Date: 20140516
  Transmission Date: 20141212
  Serious: Yes (Other)
  Sender: FDA-Public Use
  Company Number: CN-BAYER-2014-068144

PATIENT
  Age: 65 Year
  Sex: Male

DRUGS (1)
  1. GLUCOBAY [Suspect]
     Indication: BLOOD GLUCOSE ABNORMAL
     Dosage: 50 MG, TID
     Route: 048
     Dates: start: 20130711, end: 20130712

REACTIONS (2)
  - Pruritus generalised [Recovered/Resolved]
  - Face oedema [Recovered/Resolved]
